FAERS Safety Report 9113910 (Version 5)
Quarter: 2013Q3

REPORT INFORMATION
  Report Type: Spontaneous
  Country: US (occurrence: US)
  Receive Date: 20130129
  Receipt Date: 20130808
  Transmission Date: 20140515
  Serious: Yes (Other)
  Sender: FDA-Public Use
  Company Number: US-PFIZER INC-2013036344

PATIENT
  Age: 60 Year
  Sex: Female
  Weight: 86.17 kg

DRUGS (10)
  1. LYRICA [Suspect]
     Indication: FIBROMYALGIA
     Dosage: 300MG (2 CAPSULE OF 150MG), 1X/DAY
     Route: 048
     Dates: start: 2011
  2. LYRICA [Suspect]
     Indication: NEURALGIA
     Dosage: 300MG (2 CAPSULE OF 150MG), 1X/DAY
     Route: 048
  3. LYRICA [Suspect]
     Indication: NEUROPATHY PERIPHERAL
     Dosage: 150 MG, 2X/DAY
     Route: 048
     Dates: end: 201305
  4. LYRICA [Suspect]
     Dosage: 150 MG, 2X/DAY
     Route: 048
     Dates: start: 201306, end: 201307
  5. TRAMADOL HYDROCHLORIDE [Suspect]
     Indication: NEUROPATHY PERIPHERAL
     Dosage: 50 MG, 4X/DAY
     Dates: start: 2012
  6. TRAMADOL HYDROCHLORIDE [Suspect]
     Dosage: 50 MG, 4X/DAY
  7. INSULIN [Concomitant]
     Dosage: UNK
  8. ADVAIR [Concomitant]
     Dosage: UNK
  9. EFEXOR XR [Concomitant]
     Dosage: 75 MG, UNK
  10. LANTUS [Concomitant]
     Indication: DIABETES MELLITUS
     Dosage: UNK

REACTIONS (13)
  - Pain [Not Recovered/Not Resolved]
  - Depression [Not Recovered/Not Resolved]
  - Drug effect incomplete [Unknown]
  - Drug ineffective [Unknown]
  - Malaise [Unknown]
  - Feeling abnormal [Unknown]
  - Drug withdrawal syndrome [Unknown]
  - Tremor [Unknown]
  - Diarrhoea [Unknown]
  - Vomiting [Unknown]
  - Hypotension [Unknown]
  - Dysgraphia [Unknown]
  - Dysarthria [Unknown]
